FAERS Safety Report 5096285-1 (Version None)
Quarter: 2006Q3

REPORT INFORMATION
  Report Type: 
  Country: None (occurrence: None)
  Receive Date: 20060831
  Receipt Date: 20060819
  Transmission Date: 20061208
  Serious: Yes (Other)
  Sender: FDA-Public Use
  Company Number: 2006100056

PATIENT
  Age: 62 Year
  Sex: Female
  Weight: 72.1219 kg

DRUGS (4)
  1. BENADRYL [Suspect]
     Indication: ARTHROPOD BITE
     Dosage: TOPICAL
     Route: 061
     Dates: start: 20060819, end: 20060819
  2. ATENOLOL [Concomitant]
  3. TERBINAFINE HCL [Concomitant]
  4. IBUPROFEN [Concomitant]

REACTIONS (2)
  - BLOOD PRESSURE INCREASED [None]
  - HYPERSENSITIVITY [None]
